FAERS Safety Report 7398888-8 (Version None)
Quarter: 2011Q1

REPORT INFORMATION
  Report Type: 
  Country: None (occurrence: None)
  Receive Date: 20110328
  Receipt Date: 20110317
  Transmission Date: 20110831
  Serious: No
  Sender: FDA-Public Use
  Company Number: 2011-00106

PATIENT
  Age: 63 Year
  Sex: Male
  Weight: 113.3993 kg

DRUGS (3)
  1. PROSCAR [Concomitant]
  2. ZICAM COLD REMEDY RAPIDMELTS [Suspect]
     Dosage: AS DIRECTED X 7 DAYS
     Dates: start: 20100901, end: 20100907
  3. NORVASC [Concomitant]

REACTIONS (1)
  - AGEUSIA [None]
